FAERS Safety Report 6822406-3 (Version None)
Quarter: 2010Q3

REPORT INFORMATION
  Report Type: 
  Country: None (occurrence: None)
  Receive Date: 20100708
  Receipt Date: 20100630
  Transmission Date: 20110219
  Serious: Yes (Hospitalization, Other)
  Sender: FDA-Public Use
  Company Number: PHHY2010MX43401

PATIENT
  Age: 79 Year
  Sex: Male

DRUGS (3)
  1. STALEVO 100 [Suspect]
     Indication: PARKINSON'S DISEASE
     Dosage: 2 DF, UNK
     Route: 048
     Dates: start: 20100406
  2. INSULIN [Concomitant]
     Indication: DIABETES MELLITUS
     Dosage: 30 IU
     Dates: start: 20100601
  3. DABEX [Concomitant]
     Indication: DIABETES MELLITUS
     Dosage: 2 TABLETS DAILY
     Route: 048
     Dates: start: 20100616

REACTIONS (4)
  - HAEMOGLOBIN DECREASED [None]
  - PNEUMONIA [None]
  - PRURITUS [None]
  - PYREXIA [None]
